FAERS Safety Report 6299272-0 (Version None)
Quarter: 2009Q3

REPORT INFORMATION
  Report Type: 
  Country: None (occurrence: None)
  Receive Date: 20090806
  Receipt Date: 20090727
  Transmission Date: 20100115
  Serious: Yes (Death)
  Sender: FDA-Public Use
  Company Number: TW-BAXTER-2009BH008488

PATIENT
  Sex: Female

DRUGS (8)
  1. DIANEAL [Suspect]
     Indication: PERITONEAL DIALYSIS
     Route: 033
     Dates: start: 20090401
  2. DIANEAL [Suspect]
     Route: 033
     Dates: start: 20090401
  3. DIANEAL [Suspect]
     Route: 033
     Dates: start: 20090201, end: 20090401
  4. DIANEAL [Suspect]
     Indication: PERITONEAL DIALYSIS
     Route: 033
     Dates: start: 20090401
  5. DIANEAL [Suspect]
     Route: 033
     Dates: start: 20090201, end: 20090401
  6. DIANEAL [Suspect]
     Route: 033
     Dates: start: 20090401
  7. EXTRANEAL [Suspect]
     Indication: PERITONEAL DIALYSIS
     Route: 033
     Dates: start: 20090401
  8. EXTRANEAL [Suspect]
     Route: 033
     Dates: start: 20090201, end: 20090401

REACTIONS (1)
  - HEPATIC NEOPLASM MALIGNANT [None]
